FAERS Safety Report 26001157 (Version 1)
Quarter: 2025Q4

REPORT INFORMATION
  Report Type: Spontaneous
  Country: CA (occurrence: CA)
  Receive Date: 20251105
  Receipt Date: 20251105
  Transmission Date: 20260117
  Serious: Yes (Life-Threatening, Hospitalization, Other)
  Sender: PFIZER
  Company Number: CA-PFIZER INC-202500217604

PATIENT
  Age: 13 Year
  Sex: Male
  Weight: 68 kg

DRUGS (5)
  1. DOXORUBICIN HYDROCHLORIDE [Suspect]
     Active Substance: DOXORUBICIN HYDROCHLORIDE
     Dosage: UNK
  2. VINCRISTINE SULFATE [Suspect]
     Active Substance: VINCRISTINE SULFATE
     Dosage: UNK
  3. CYCLOPHOSPHAMIDE [Suspect]
     Active Substance: CYCLOPHOSPHAMIDE
     Dosage: UNK
  4. ETOPOSIDE [Suspect]
     Active Substance: ETOPOSIDE
     Dosage: UNK
  5. IFOSFAMIDE [Suspect]
     Active Substance: IFOSFAMIDE
     Dosage: UNK
     Route: 042

REACTIONS (1)
  - Febrile neutropenia [Recovered/Resolved]
